FAERS Safety Report 15307763 (Version 1)
Quarter: 2018Q3

REPORT INFORMATION
  Report Type: Spontaneous
  Country: US (occurrence: US)
  Receive Date: 20180811
  Receipt Date: 20180811
  Transmission Date: 20181010
  Serious: Yes (Hospitalization)
  Sender: FDA-Public Use
  Company Number: None

PATIENT
  Age: 67 Year
  Sex: Male
  Weight: 84.28 kg

DRUGS (17)
  1. COENZYME Q10 [Concomitant]
     Active Substance: UBIDECARENONE
  2. LORAZAPAM [Concomitant]
     Active Substance: LORAZEPAM
  3. PRASUGREL. [Concomitant]
     Active Substance: PRASUGREL
  4. CASODEX [Suspect]
     Active Substance: BICALUTAMIDE
     Dates: end: 20180710
  5. LOSARTAN. [Concomitant]
     Active Substance: LOSARTAN
  6. MULTIVITAMIN [Concomitant]
     Active Substance: VITAMINS
  7. OMEGA?3 ACIDS [Concomitant]
     Active Substance: OMEGA-3 FATTY ACIDS
  8. ROSUVASTATIN. [Concomitant]
     Active Substance: ROSUVASTATIN
  9. METOPROLOL XL [Concomitant]
     Active Substance: METOPROLOL SUCCINATE
  10. ASPIRIN. [Concomitant]
     Active Substance: ASPIRIN
  11. LEUPROLIDE ACETATE. [Suspect]
     Active Substance: LEUPROLIDE ACETATE
     Dates: end: 20180615
  12. ADVIL [Concomitant]
     Active Substance: IBUPROFEN
  13. ADVIL PM [Concomitant]
     Active Substance: DIPHENHYDRAMINE CITRATE\IBUPROFEN
  14. METFORMIN [Concomitant]
     Active Substance: METFORMIN HYDROCHLORIDE
  15. SITAGLIPTIN [Concomitant]
     Active Substance: SITAGLIPTIN
  16. MELATONIN [Concomitant]
     Active Substance: MELATONIN
  17. AMLODIPINE [Concomitant]
     Active Substance: AMLODIPINE BESYLATE

REACTIONS (6)
  - Nephrolithiasis [None]
  - Ureterolithiasis [None]
  - Haematuria [None]
  - Urinary tract infection [None]
  - Flatulence [None]
  - Abdominal pain [None]

NARRATIVE: CASE EVENT DATE: 20180710
